FAERS Safety Report 7791711-9 (Version None)
Quarter: 2011Q4

REPORT INFORMATION
  Report Type: 
  Country: None (occurrence: None)
  Receive Date: 20111003
  Receipt Date: 20110921
  Transmission Date: 20120403
  Serious: Yes (Hospitalization)
  Sender: FDA-Public Use
  Company Number: US-BAYER-2011-028028

PATIENT
  Age: 23 Year
  Sex: Female
  Weight: 75 kg

DRUGS (6)
  1. YAZ [Suspect]
     Dosage: UNK
     Dates: start: 20050201
  2. YASMIN [Suspect]
     Dosage: UNK
     Dates: start: 20051201, end: 20060501
  3. DROSPIRENONE AND ETHINYL ESTRADIOL [Suspect]
     Dosage: UNK
     Dates: start: 20080701, end: 20090301
  4. NSAID'S [Concomitant]
  5. YASMIN [Suspect]
     Dosage: UNK
     Dates: start: 20070901, end: 20080601
  6. ASCORBIC ACID [Concomitant]

REACTIONS (6)
  - INJURY [None]
  - DIARRHOEA [None]
  - NAUSEA [None]
  - ABDOMINAL PAIN UPPER [None]
  - CHOLECYSTITIS CHRONIC [None]
  - PAIN [None]
